FAERS Safety Report 13445699 (Version 1)
Quarter: 2017Q2

REPORT INFORMATION
  Report Type: Spontaneous
  Country: US (occurrence: US)
  Receive Date: 20170416
  Receipt Date: 20170416
  Transmission Date: 20170830
  Serious: Yes (Other)
  Sender: FDA-Public Use
  Company Number: US-GLAXOSMITHKLINE-US2017052232

PATIENT
  Sex: Female

DRUGS (2)
  1. SENSODYNE [Suspect]
     Active Substance: POTASSIUM NITRATE\SODIUM FLUORIDE
     Indication: SENSITIVITY OF TEETH
     Dosage: UNK
  2. SENSODYNE PRONAMEL [Suspect]
     Active Substance: POTASSIUM NITRATE\SODIUM FLUORIDE
     Indication: SENSITIVITY OF TEETH
     Dosage: UNK

REACTIONS (11)
  - Oral discomfort [Unknown]
  - Nasal discomfort [Unknown]
  - Ill-defined disorder [Unknown]
  - Tooth disorder [Unknown]
  - Skin burning sensation [Unknown]
  - Oral pain [Unknown]
  - Dyspepsia [Not Recovered/Not Resolved]
  - Toothache [Unknown]
  - Retching [Unknown]
  - Drug intolerance [Unknown]
  - Eye irritation [Unknown]
